FAERS Safety Report 9661260 (Version 1)
Quarter: 2013Q4

REPORT INFORMATION
  Report Type: Spontaneous
  Country: IN (occurrence: IN)
  Receive Date: 20131031
  Receipt Date: 20131031
  Transmission Date: 20140711
  Serious: Yes (Hospitalization)
  Sender: FDA-Public Use
  Company Number: IN-MYLANLABS-2013S1023790

PATIENT
  Age: 16 Year
  Sex: Male

DRUGS (2)
  1. PHENYTOIN [Suspect]
     Dosage: PHENYTOIN 1000MG IN NORMAL SODIUM CHLORIDE OVER 1H
     Route: 041
  2. SODIUM CHLORIDE [Concomitant]
     Dosage: PHENYTOIN 1000MG IN NORMAL SODIUM CHLORIDE OVER 1H
     Route: 041

REACTIONS (1)
  - Compartment syndrome [Recovering/Resolving]
